FAERS Safety Report 19485912 (Version 7)
Quarter: 2021Q4

REPORT INFORMATION
  Report Type: Report from Study
  Country: SE (occurrence: SE)
  Receive Date: 20210702
  Receipt Date: 20211224
  Transmission Date: 20220303
  Serious: Yes (Other)
  Sender: FDA-Public Use
  Company Number: SE-ABBVIE-21K-150-3959586-00

PATIENT
  Sex: Female
  Weight: 90 kg

DRUGS (7)
  1. CARBIDOPA\LEVODOPA [Suspect]
     Active Substance: CARBIDOPA\LEVODOPA
     Indication: Parkinson^s disease
     Route: 050
     Dates: start: 20180313, end: 20191127
  2. CARBIDOPA\LEVODOPA [Suspect]
     Active Substance: CARBIDOPA\LEVODOPA
     Dosage: CURRENT DOSAGE: MORNING DOSE: 7 ML, CONTINUOUS DOSE: 3.0 ML/H, EXTRA DOSE: 1.0 ML.
     Route: 050
     Dates: start: 20210622, end: 2021
  3. CARBIDOPA\LEVODOPA [Suspect]
     Active Substance: CARBIDOPA\LEVODOPA
     Dosage: CURRENT DOSAGE: MORNING DOSE: 6.5 ML, CONTINUOUS DOSE:?DECREASED FROM 2.9 TO 2.8 ML/H
     Route: 050
     Dates: start: 20210719, end: 20210719
  4. CARBIDOPA\LEVODOPA [Suspect]
     Active Substance: CARBIDOPA\LEVODOPA
     Dosage: EXTRA DOSE: INCREASED FROM 1 ML TO 1.5 ML
     Route: 050
     Dates: start: 20210719
  5. CARBIDOPA\LEVODOPA [Suspect]
     Active Substance: CARBIDOPA\LEVODOPA
     Dosage: MORNING DOSE DECREASED FROM 6.5 ML TO 5.5 ML
     Route: 050
     Dates: start: 20211209, end: 202112
  6. CARBIDOPA\LEVODOPA [Suspect]
     Active Substance: CARBIDOPA\LEVODOPA
     Dosage: CONTINUOUS DOSE DECREASED FROM 2.6 ML/H TO 2.5 ML/H
     Route: 050
     Dates: start: 20211216
  7. CARBIDOPA\ENTACAPONE\LEVODOPA [Suspect]
     Active Substance: CARBIDOPA\ENTACAPONE\LEVODOPA
     Indication: Product used for unknown indication
     Route: 065
     Dates: start: 20191127, end: 20210622

REACTIONS (7)
  - Cataract [Recovered/Resolved]
  - Transient ischaemic attack [Recovered/Resolved]
  - Eye disorder [Unknown]
  - Pain in extremity [Recovering/Resolving]
  - Paraesthesia [Not Recovered/Not Resolved]
  - Hyperkinesia [Recovering/Resolving]
  - Therapeutic product effect incomplete [Unknown]

NARRATIVE: CASE EVENT DATE: 20200101
